FAERS Safety Report 24375286 (Version 1)
Quarter: 2024Q3

REPORT INFORMATION
  Report Type: Spontaneous
  Country: US (occurrence: US)
  Receive Date: 20240928
  Receipt Date: 20240928
  Transmission Date: 20241016
  Serious: No
  Sender: GRANULES INDIA
  Company Number: US-GRANULES-US-2024GRASPO00422

PATIENT
  Age: 34 Year
  Sex: Male
  Weight: 220 kg

DRUGS (1)
  1. METFORMIN HYDROCHLORIDE [Suspect]
     Active Substance: METFORMIN HYDROCHLORIDE
     Indication: Diabetes mellitus
     Route: 048
     Dates: start: 2014, end: 202408

REACTIONS (7)
  - Migraine [Recovered/Resolved]
  - Impaired work ability [Recovered/Resolved]
  - Loss of personal independence in daily activities [Recovered/Resolved]
  - Photosensitivity reaction [Recovered/Resolved]
  - Emotional distress [Recovered/Resolved]
  - Dumping syndrome [Recovered/Resolved]
  - Nausea [Recovered/Resolved]

NARRATIVE: CASE EVENT DATE: 20140101
